FAERS Safety Report 14412369 (Version 1)
Quarter: 2018Q1

REPORT INFORMATION
  Report Type: Spontaneous
  Country: US (occurrence: US)
  Receive Date: 20180118
  Receipt Date: 20180118
  Transmission Date: 20180509
  Serious: Yes (Life-Threatening)
  Sender: FDA-Public Use
  Company Number: None

PATIENT
  Age: 49 Year
  Sex: Female
  Weight: 50.94 kg

DRUGS (2)
  1. INJECTAFER [Concomitant]
     Active Substance: FERRIC CARBOXYMALTOSE
  2. ROLAPITANT [Suspect]
     Active Substance: ROLAPITANT
     Indication: PROPHYLAXIS OF NAUSEA AND VOMITING
     Dosage: ?          OTHER FREQUENCY:EVERY 3 WEEKS;?
     Route: 041
     Dates: start: 20180104, end: 20180104

REACTIONS (2)
  - Unresponsive to stimuli [None]
  - Seizure [None]

NARRATIVE: CASE EVENT DATE: 20180104
